FAERS Safety Report 9069183 (Version 1)
Quarter: 2013Q1

REPORT INFORMATION
  Report Type: Report from Study
  Country: US (occurrence: US)
  Receive Date: 20130131
  Receipt Date: 20130131
  Transmission Date: 20140127
  Serious: No
  Sender: FDA-Public Use
  Company Number: US-ABBOTT-12P-163-0999836-00

PATIENT
  Sex: Female
  Weight: 61.29 kg

DRUGS (2)
  1. HUMIRA [Suspect]
     Indication: RHEUMATOID ARTHRITIS
     Dates: start: 200606, end: 201201
  2. ALEVE [Concomitant]
     Indication: PAIN

REACTIONS (3)
  - Sinusitis [Recovered/Resolved]
  - Alopecia [Recovered/Resolved]
  - Localised infection [Recovered/Resolved]
